FAERS Safety Report 25321727 (Version 9)
Quarter: 2025Q4

REPORT INFORMATION
  Report Type: Report from Study
  Country: EU (occurrence: EU)
  Receive Date: 20250516
  Receipt Date: 20251011
  Transmission Date: 20260118
  Serious: Yes (Hospitalization)
  Sender: ABBVIE
  Company Number: EU-ABBVIE-6281353

PATIENT
  Age: 71 Year
  Sex: Male

DRUGS (2)
  1. FOSCARBIDOPA\FOSLEVODOPA [Suspect]
     Active Substance: FOSCARBIDOPA\FOSLEVODOPA
     Indication: Parkinson^s disease
     Dosage: SD: 0.60 ML, CRN: 0.18 ML/H, CR: 0.31 ML/H, CRH: 0.35 ML/H, ED: 0.25 ML,?LAST ADMIN DATE: 2025
     Route: 058
     Dates: start: 20250409
  2. FOSCARBIDOPA\FOSLEVODOPA [Suspect]
     Active Substance: FOSCARBIDOPA\FOSLEVODOPA
     Dosage: CRN: 0.18 ML/H, CR: 0.31 ML/H, CRH: 0.36 ML/H, ED: 0.25 ML, 01:00 H,?FIRST ADMIN DATE: 2025
     Route: 058

REACTIONS (9)
  - Skin operation [Unknown]
  - Hypokinesia [Unknown]
  - Dyskinesia [Unknown]
  - Infusion site nodule [Not Recovered/Not Resolved]
  - Infusion site erythema [Not Recovered/Not Resolved]
  - Infusion site induration [Not Recovered/Not Resolved]
  - Infusion site inflammation [Unknown]
  - On and off phenomenon [Unknown]
  - Infusion site bruising [Not Recovered/Not Resolved]

NARRATIVE: CASE EVENT DATE: 20250101
